FAERS Safety Report 18678251 (Version 2)
Quarter: 2022Q2

REPORT INFORMATION
  Report Type: Spontaneous
  Country: ES (occurrence: ES)
  Receive Date: 20201229
  Receipt Date: 20220527
  Transmission Date: 20220720
  Serious: Yes (Other)
  Sender: FDA-Public Use
  Company Number: ES-JNJFOC-20201244058

PATIENT

DRUGS (1)
  1. IBRUTINIB [Suspect]
     Active Substance: IBRUTINIB
     Indication: Mantle cell lymphoma refractory
     Route: 065

REACTIONS (25)
  - Leukopenia [Unknown]
  - Atrial fibrillation [Unknown]
  - Neutropenia [Unknown]
  - Thrombocytopenia [Unknown]
  - Staphylococcal sepsis [Unknown]
  - Ischaemic stroke [Unknown]
  - Pseudomonas infection [Unknown]
  - Bacterial infection [Unknown]
  - Asthenia [Unknown]
  - Neoplasm [Unknown]
  - Weight decreased [Unknown]
  - Transaminases increased [Unknown]
  - Cardiovascular disorder [Unknown]
  - Flatulence [Unknown]
  - Ecchymosis [Unknown]
  - Petechiae [Unknown]
  - Constipation [Unknown]
  - Rash [Unknown]
  - Abdominal pain [Unknown]
  - Musculoskeletal pain [Unknown]
  - Diarrhoea [Unknown]
  - Lower respiratory tract infection [Unknown]
  - Herpes zoster [Unknown]
  - Oedema [Unknown]
  - General physical health deterioration [Unknown]
